FAERS Safety Report 6015933-2 (Version None)
Quarter: 2008Q4

REPORT INFORMATION
  Report Type: 
  Country: None (occurrence: None)
  Receive Date: 20081222
  Receipt Date: 20081212
  Transmission Date: 20090506
  Serious: Yes (Hospitalization)
  Sender: FDA-Public Use
  Company Number: CH-AMGEN-US323217

PATIENT
  Age: 60 Year
  Sex: Female
  Weight: 82 kg

DRUGS (2)
  1. ENBREL [Suspect]
     Indication: POLYARTHRITIS
     Dosage: DOSE AND FREQUENCY UNKNOWN
     Dates: start: 20020101, end: 20081019
  2. LOSARTAN POTASSIUM AND HYDROCHLOROTHIAZIDE [Concomitant]
     Indication: HYPERTENSION
     Dosage: 160-50/12.5 MG, DAILY
     Route: 048
     Dates: start: 20030101

REACTIONS (6)
  - CONDITION AGGRAVATED [None]
  - DERMO-HYPODERMITIS [None]
  - ECZEMA NUMMULAR [None]
  - FUNGAL SKIN INFECTION [None]
  - INFLAMMATION [None]
  - PYODERMA GANGRENOSUM [None]
